FAERS Safety Report 7184235-3 (Version None)
Quarter: 2010Q4

REPORT INFORMATION
  Report Type: 
  Country: None (occurrence: None)
  Receive Date: 20101222
  Receipt Date: 20100519
  Transmission Date: 20110411
  Serious: No
  Sender: FDA-Public Use
  Company Number: US-AMGEN-KDL413499

PATIENT

DRUGS (2)
  1. ENBREL [Suspect]
     Indication: RHEUMATOID ARTHRITIS
     Dosage: 50 MG, QWK
     Route: 058
     Dates: start: 20100310
  2. METHOTREXATE [Concomitant]
     Dosage: UNK UNK, UNK

REACTIONS (7)
  - ERYTHEMA [None]
  - FEELING HOT [None]
  - HEADACHE [None]
  - INJECTION SITE ERYTHEMA [None]
  - MUSCLE STRAIN [None]
  - RASH [None]
  - SINUSITIS [None]
